FAERS Safety Report 21072153 (Version 1)
Quarter: 2022Q3

REPORT INFORMATION
  Report Type: Spontaneous
  Country: US (occurrence: None)
  Receive Date: 20220712
  Receipt Date: 20220712
  Transmission Date: 20221027
  Serious: No
  Sender: FDA-Public Use
  Company Number: None

PATIENT
  Age: 82 Year
  Sex: Male
  Weight: 52.98 kg

DRUGS (16)
  1. CAPECITABINE [Suspect]
     Active Substance: CAPECITABINE
     Indication: Neoplasm malignant
     Dosage: FREQUENCY : TWICE A DAY;?
     Route: 048
  2. ALENRONATE SODIUM [Concomitant]
  3. CALCIUM\CHOLECALCIFEROL [Concomitant]
     Active Substance: CALCIUM\CHOLECALCIFEROL
  4. ENALAPRIL [Concomitant]
     Active Substance: ENALAPRIL
  5. MALEATE [Concomitant]
  6. FINASTERIDE [Concomitant]
  7. METOPROLOL [Concomitant]
     Active Substance: METOPROLOL
  8. SUCCINATE ER [Concomitant]
  9. MULTIVITAMIN ADULTS [Concomitant]
  10. NIFEDIPINE ER [Concomitant]
  11. PANTOPRAZOLE SODIUM [Concomitant]
  12. PROTONIX [Concomitant]
  13. TAMSULOSIN HCI [Concomitant]
  14. TYLENOL [Concomitant]
  15. VASCEPA [Concomitant]
  16. ZOFRAN [Concomitant]

REACTIONS (1)
  - Surgery [None]
